FAERS Safety Report 8139788-5 (Version None)
Quarter: 2012Q1

REPORT INFORMATION
  Report Type: 
  Country: None (occurrence: None)
  Receive Date: 20120215
  Receipt Date: 20120207
  Transmission Date: 20120608
  Serious: Yes (Other)
  Sender: FDA-Public Use
  Company Number: US-CELGENEUS-163-21880-12012524

PATIENT
  Sex: Female
  Weight: 95.34 kg

DRUGS (22)
  1. REVLIMID [Suspect]
     Indication: MULTIPLE MYELOMA
     Dosage: 10 MILLIGRAM
     Route: 048
     Dates: start: 20120101
  2. CALCIUM [Concomitant]
     Route: 065
  3. POTASSIUM CHLORIDE [Concomitant]
     Dosage: 10 MILLIEQUIVALENTS
     Route: 065
  4. MULTI-VITAMINS [Concomitant]
     Route: 065
  5. ZOLOFT [Concomitant]
     Dosage: 100 MILLIGRAM
     Route: 065
  6. ATENOLOL [Concomitant]
     Dosage: 50 MILLIGRAM
     Route: 065
  7. MAGNESIUM [Concomitant]
     Route: 065
  8. LASIX [Concomitant]
     Dosage: 40 MILLIGRAM
     Route: 065
  9. LATROL [Concomitant]
     Dosage: 20 MILLIGRAM
     Route: 065
  10. ASPIRIN [Concomitant]
     Route: 065
  11. PRILOSEC [Concomitant]
     Route: 065
  12. ACETAMINOPHEN [Concomitant]
     Route: 065
  13. VITAMIN E [Concomitant]
     Route: 065
  14. PREVACID [Concomitant]
     Route: 065
  15. PEPCID [Concomitant]
     Dosage: 40 MILLIGRAM
     Route: 065
  16. LEVOTHYROXINE SODIUM [Concomitant]
     Dosage: 175 MILLIEQUIVALENTS
     Route: 065
  17. POTASSIUM CHLORIDE [Concomitant]
     Route: 065
  18. VITAMIN B-12 [Concomitant]
     Route: 065
  19. ZINC SULFATE [Concomitant]
     Route: 065
  20. DETROL [Concomitant]
     Route: 065
  21. LIPITOR [Concomitant]
     Dosage: 40 MILLIGRAM
     Route: 065
  22. VITAMIN D [Concomitant]
     Route: 065

REACTIONS (1)
  - HAEMOGLOBIN DECREASED [None]
